FAERS Safety Report 5697490-3 (Version None)
Quarter: 2008Q2

REPORT INFORMATION
  Report Type: 
  Country: None (occurrence: None)
  Receive Date: 20080408
  Receipt Date: 20080328
  Transmission Date: 20081010
  Serious: Yes (Death, Hospitalization)
  Sender: FDA-Public Use
  Company Number: US-JNJFOC-20080307008

PATIENT
  Sex: Female
  Weight: 54.43 kg

DRUGS (12)
  1. REMICADE [Suspect]
     Route: 042
  2. REMICADE [Suspect]
     Indication: COLITIS ULCERATIVE
     Route: 042
  3. ZOLPIDEM [Concomitant]
     Indication: INSOMNIA
  4. LORAZEPAM [Concomitant]
     Indication: DRUG USE FOR UNKNOWN INDICATION
  5. PREDNISONE [Concomitant]
     Indication: DRUG USE FOR UNKNOWN INDICATION
  6. ASACOL [Concomitant]
     Indication: DRUG USE FOR UNKNOWN INDICATION
  7. PENTASA [Concomitant]
     Indication: DRUG USE FOR UNKNOWN INDICATION
  8. BELLADONNA [Concomitant]
     Indication: DRUG USE FOR UNKNOWN INDICATION
  9. METOCLOPRAMIDE [Concomitant]
     Indication: VOMITING
  10. METOCLOPRAMIDE [Concomitant]
     Indication: NAUSEA
  11. COLAZAL [Concomitant]
     Indication: DRUG USE FOR UNKNOWN INDICATION
  12. VANCOMYCIN HCL [Concomitant]
     Indication: DRUG USE FOR UNKNOWN INDICATION

REACTIONS (3)
  - BRAIN HERNIATION [None]
  - CEREBRAL HAEMORRHAGE [None]
  - THROMBOSIS [None]
